FAERS Safety Report 17702161 (Version 1)
Quarter: 2020Q2

REPORT INFORMATION
  Report Type: Spontaneous
  Country: AU (occurrence: AU)
  Receive Date: 20200424
  Receipt Date: 20200424
  Transmission Date: 20200714
  Serious: No
  Sender: FDA-Public Use
  Company Number: AU-ROCHE-2558452

PATIENT
  Sex: Female

DRUGS (1)
  1. OCREVUS [Suspect]
     Active Substance: OCRELIZUMAB
     Indication: MULTIPLE SCLEROSIS
     Dosage: STRENGTH: 300 MG/10 ML
     Route: 042
     Dates: start: 20190226

REACTIONS (5)
  - Cognitive disorder [Recovered/Resolved]
  - Eye infection [Recovered/Resolved]
  - Dysphonia [Unknown]
  - Candida infection [Recovered/Resolved]
  - Upper respiratory tract infection [Recovered/Resolved]
